FAERS Safety Report 6642811-8 (Version None)
Quarter: 2010Q1

REPORT INFORMATION
  Report Type: 
  Country: None (occurrence: None)
  Receive Date: 20100319
  Receipt Date: 20100308
  Transmission Date: 20100710
  Serious: Yes (Disabling, Other)
  Sender: FDA-Public Use
  Company Number: US-PFIZER INC-2009285916

PATIENT
  Sex: Male
  Weight: 99.773 kg

DRUGS (1)
  1. VIAGRA [Suspect]
     Indication: ERECTILE DYSFUNCTION
     Dosage: 50-100 MG AS NEEDED
     Route: 048
     Dates: start: 20090701

REACTIONS (4)
  - NASOPHARYNGITIS [None]
  - OTITIS MEDIA [None]
  - SUDDEN HEARING LOSS [None]
  - WEIGHT INCREASED [None]
